FAERS Safety Report 12059654 (Version 1)
Quarter: 2016Q1

REPORT INFORMATION
  Report Type: Report from Study
  Country: MX (occurrence: MX)
  Receive Date: 20160210
  Receipt Date: 20160210
  Transmission Date: 20160526
  Serious: Yes (Hospitalization, Other)
  Sender: FDA-Public Use
  Company Number: PHHY2016MX017222

PATIENT
  Age: 85 Year
  Sex: Female

DRUGS (2)
  1. EUTEBROL [Concomitant]
     Indication: PRODUCT USED FOR UNKNOWN INDICATION
     Route: 065
  2. EXELON PATCH [Suspect]
     Active Substance: RIVASTIGMINE
     Indication: MEMORY IMPAIRMENT
     Dosage: 4.6 MG, QD (1 PATCH)
     Route: 062
     Dates: start: 201404

REACTIONS (3)
  - Product use issue [Unknown]
  - Cerebral infarction [Unknown]
  - Delirium [Unknown]

NARRATIVE: CASE EVENT DATE: 201404
